FAERS Safety Report 7525770-5 (Version None)
Quarter: 2011Q2

REPORT INFORMATION
  Report Type: 
  Country: None (occurrence: None)
  Receive Date: 20110603
  Receipt Date: 20110603
  Transmission Date: 20111010
  Serious: No
  Sender: FDA-Public Use
  Company Number: None

PATIENT
  Sex: Female
  Weight: 92.0802 kg

DRUGS (2)
  1. SYNTHROID [Suspect]
     Indication: HYPOTHYROIDISM
     Dosage: 50MGM DAILY PO
     Route: 048
     Dates: start: 20020101
  2. SYNTHROID [Suspect]
     Indication: HYPOTHYROIDISM
     Dosage: 50MGM DAILY PO
     Route: 048
     Dates: start: 20100101

REACTIONS (2)
  - HYPOTHYROIDISM [None]
  - PRODUCT QUALITY ISSUE [None]
